FAERS Safety Report 9778615 (Version 1)
Quarter: 2013Q4

REPORT INFORMATION
  Report Type: Spontaneous
  Country: US (occurrence: None)
  Receive Date: 20131219
  Receipt Date: 20131219
  Transmission Date: 20140711
  Serious: Yes (Hospitalization, Other)
  Sender: FDA-Public Use
  Company Number: 2010S1000471

PATIENT
  Age: 72 Year
  Sex: Male
  Weight: 63.05 kg

DRUGS (4)
  1. FLEET PHOSPHO-SODA [Suspect]
     Indication: COLONOSCOPY
     Route: 048
     Dates: start: 20000518, end: 20000518
  2. FLEET PHOSPHO-SODA [Suspect]
     Indication: BOWEL PREPARATION
     Route: 048
     Dates: start: 20000518, end: 20000518
  3. ERYTHROMYCIN [Suspect]
     Route: 048
     Dates: start: 20000601, end: 20000601
  4. NEOMYCIN (NEOMYCIN) [Suspect]
     Dosage: 1 GRAM, AT 6:00 P.M., 8:00 P.M., AND 10:000 P.M.
     Route: 048
     Dates: start: 20000601, end: 20000601

REACTIONS (7)
  - Dyspnoea [None]
  - Chest discomfort [None]
  - Hypertension [None]
  - Renal failure acute [None]
  - Nephrosclerosis [None]
  - Cardiorenal syndrome [None]
  - Cardiac failure congestive [None]
